FAERS Safety Report 14160697 (Version 2)
Quarter: 2019Q1

REPORT INFORMATION
  Report Type: Spontaneous
  Country: US (occurrence: US)
  Receive Date: 20171105
  Receipt Date: 20190322
  Transmission Date: 20190417
  Serious: No
  Sender: FDA-Public Use
  Company Number: US-SHIRE-US201723366

PATIENT
  Age: 14 Year
  Sex: Male

DRUGS (1)
  1. VYVANSE [Suspect]
     Active Substance: LISDEXAMFETAMINE DIMESYLATE
     Indication: PRODUCT USED FOR UNKNOWN INDICATION
     Dosage: 40MG 100CT CAPS
     Route: 048
     Dates: start: 2015

REACTIONS (2)
  - Drug ineffective [Recovered/Resolved]
  - Product quality issue [Recovered/Resolved]

NARRATIVE: CASE EVENT DATE: 201708
